FAERS Safety Report 7930214-5 (Version None)
Quarter: 2011Q4

REPORT INFORMATION
  Report Type: 
  Country: None (occurrence: None)
  Receive Date: 20111118
  Receipt Date: 20111118
  Transmission Date: 20120403
  Serious: No
  Sender: FDA-Public Use
  Company Number: None

PATIENT
  Age: 53 Year
  Sex: Male
  Weight: 93.3 kg

DRUGS (1)
  1. NAFCILLIN [Suspect]
     Indication: UPPER RESPIRATORY TRACT INFECTION
     Dosage: 2 GM OTHER IV
     Route: 042
     Dates: start: 20110912, end: 20110917

REACTIONS (2)
  - RENAL IMPAIRMENT [None]
  - DEHYDRATION [None]
